FAERS Safety Report 21608530 (Version 1)
Quarter: 2022Q4

REPORT INFORMATION
  Report Type: Report from Study
  Country: US (occurrence: US)
  Receive Date: 20221117
  Receipt Date: 20221117
  Transmission Date: 20230113
  Serious: Yes (Hospitalization, Other)
  Sender: FDA-Public Use
  Company Number: US-BRISTOL-MYERS SQUIBB COMPANY-2022-137006

PATIENT
  Age: 64 Year
  Sex: Female
  Weight: 89.81 kg

DRUGS (1)
  1. REVLIMID [Suspect]
     Active Substance: LENALIDOMIDE
     Indication: Plasma cell myeloma
     Dosage: OTHER DAY FOR 21DAYS FOLLOWED BY 7DAYS OFF
     Route: 048

REACTIONS (3)
  - Dyspnoea [Unknown]
  - Cardiac disorder [Unknown]
  - Deafness unilateral [Unknown]

NARRATIVE: CASE EVENT DATE: 20221028
